FAERS Safety Report 4817124-7 (Version None)
Quarter: 2005Q3

REPORT INFORMATION
  Report Type: 
  Country: None (occurrence: None)
  Receive Date: 20050929
  Receipt Date: 20050609
  Transmission Date: 20060218
  Serious: No
  Sender: FDA-Public Use
  Company Number: 05P-163-0302717-00

PATIENT
  Age: 68 Year
  Sex: Female
  Weight: 63.5036 kg

DRUGS (9)
  1. HUMIRA [Suspect]
     Indication: RHEUMATOID ARTHRITIS
     Dosage: 40 MG, 1 IN 2 WK, SUBCUTANEOUS
     Route: 058
     Dates: start: 20040801, end: 20050509
  2. METHOTREXATE [Concomitant]
  3. LOTREL [Concomitant]
  4. LEXAPRO [Concomitant]
  5. ERGOCALCIFEROL [Concomitant]
  6. HYDROCHLOROTHIAZIDE [Concomitant]
  7. FOLIC ACID [Concomitant]
  8. CALCIUM CARBONATE [Concomitant]
  9. BUSPIRONE HCL [Concomitant]

REACTIONS (5)
  - INJECTION SITE BRUISING [None]
  - INJECTION SITE HAEMORRHAGE [None]
  - INJECTION SITE IRRITATION [None]
  - INJECTION SITE RASH [None]
  - INJECTION SITE SWELLING [None]
